FAERS Safety Report 13567838 (Version 2)
Quarter: 2017Q3

REPORT INFORMATION
  Report Type: Spontaneous
  Country: US (occurrence: US)
  Receive Date: 20170522
  Receipt Date: 20170724
  Transmission Date: 20171127
  Serious: Yes (Hospitalization)
  Sender: FDA-Public Use
  Company Number: US-JNJFOC-20170519939

PATIENT
  Age: 61 Year
  Sex: Female

DRUGS (1)
  1. INVOKANA [Suspect]
     Active Substance: CANAGLIFLOZIN
     Indication: DIABETES MELLITUS
     Dosage: 100 MG AND 300 MG
     Route: 048
     Dates: start: 20140819, end: 20150329

REACTIONS (5)
  - Urinary tract infection [Recovering/Resolving]
  - Acute kidney injury [Unknown]
  - Sepsis [Recovering/Resolving]
  - Nephrolithiasis [Recovering/Resolving]
  - Diabetic ketoacidosis [Recovering/Resolving]

NARRATIVE: CASE EVENT DATE: 20150328
